FAERS Safety Report 26110785 (Version 1)
Quarter: 2025Q4

REPORT INFORMATION
  Report Type: Report from Study
  Country: NZ (occurrence: NZ)
  Receive Date: 20251202
  Receipt Date: 20251202
  Transmission Date: 20260118
  Serious: Yes (Other)
  Sender: ROCHE
  Company Number: NZ-ROCHE-10000448561

PATIENT

DRUGS (1)
  1. TECENTRIQ [Suspect]
     Active Substance: ATEZOLIZUMAB
     Indication: Product used for unknown indication
     Route: 065

REACTIONS (1)
  - Tumour lysis syndrome [Unknown]
